FAERS Safety Report 15138960 (Version 1)
Quarter: 2018Q3

REPORT INFORMATION
  Report Type: Spontaneous
  Country: US (occurrence: US)
  Receive Date: 20180713
  Receipt Date: 20180713
  Transmission Date: 20181010
  Serious: Yes (Life-Threatening, Hospitalization, Other)
  Sender: FDA-Public Use
  Company Number: US-WEST-WARD PHARMACEUTICALS CORP.-US-H14001-17-03096

PATIENT
  Age: 76 Year
  Sex: Female

DRUGS (1)
  1. HEPARIN [Suspect]
     Active Substance: HEPARIN SODIUM
     Indication: PULMONARY EMBOLISM
     Route: 065

REACTIONS (4)
  - Respiratory failure [Recovering/Resolving]
  - Chest pain [Recovering/Resolving]
  - Heparin-induced thrombocytopenia [Recovering/Resolving]
  - Pulmonary embolism [Recovered/Resolved]
